FAERS Safety Report 19673416 (Version 1)
Quarter: 2021Q3

REPORT INFORMATION
  Report Type: Report from Study
  Country: None (occurrence: BR)
  Receive Date: 20210809
  Receipt Date: 20210809
  Transmission Date: 20211014
  Serious: Yes (Death, Other)
  Sender: FDA-Public Use
  Company Number: BR-ABBVIE-21K-020-4029744-00

PATIENT
  Age: 81 Year
  Sex: Male
  Weight: 106 kg

DRUGS (1)
  1. HUMIRA [Suspect]
     Active Substance: ADALIMUMAB
     Indication: RHEUMATOID ARTHRITIS
     Dosage: UNSPECIFIED DOSE
     Route: 058
     Dates: start: 20160801

REACTIONS (8)
  - COVID-19 [Fatal]
  - Multiple organ dysfunction syndrome [Fatal]
  - Cardiac arrest [Unknown]
  - Renal disorder [Unknown]
  - Acute respiratory failure [Unknown]
  - Lung disorder [Unknown]
  - Arrhythmia [Unknown]
  - Pneumonia [Unknown]

NARRATIVE: CASE EVENT DATE: 2021
